FAERS Safety Report 19036109 (Version 1)
Quarter: 2021Q1

REPORT INFORMATION
  Report Type: Other
  Country: US (occurrence: US)
  Receive Date: 20210321
  Receipt Date: 20210321
  Transmission Date: 20210420
  Serious: Yes (Other)
  Sender: FDA-Public Use
  Company Number: US-ROCHE-2794763

PATIENT
  Age: 59 Year
  Sex: Male

DRUGS (17)
  1. AVASTIN [Suspect]
     Active Substance: BEVACIZUMAB
     Dosage: LEFT EYE
     Route: 050
     Dates: start: 20181207
  2. AVASTIN [Suspect]
     Active Substance: BEVACIZUMAB
     Dosage: LEFT EYE
     Route: 050
     Dates: start: 20190303
  3. AVASTIN [Suspect]
     Active Substance: BEVACIZUMAB
     Indication: DIABETIC RETINAL OEDEMA
     Dosage: RIGHT EYE
     Route: 050
     Dates: start: 20180716
  4. AVASTIN [Suspect]
     Active Substance: BEVACIZUMAB
     Dosage: LEFT EYE
     Route: 050
     Dates: start: 20180718
  5. AMLODIPINE [Concomitant]
     Active Substance: AMLODIPINE BESYLATE
  6. AVASTIN [Suspect]
     Active Substance: BEVACIZUMAB
     Dosage: RIGHT EYE
     Route: 050
     Dates: start: 20190522
  7. VITAMIN B6 [Concomitant]
     Active Substance: PYRIDOXINE HYDROCHLORIDE
  8. AVASTIN [Suspect]
     Active Substance: BEVACIZUMAB
     Dosage: RIGHT AND LEFT EYE
     Route: 050
     Dates: start: 20181010
  9. FOLIC ACID. [Concomitant]
     Active Substance: FOLIC ACID
  10. LISINOPRIL. [Concomitant]
     Active Substance: LISINOPRIL
  11. AVASTIN [Suspect]
     Active Substance: BEVACIZUMAB
     Dosage: RIGHT EYE
     Route: 050
     Dates: start: 20180808
  12. AVASTIN [Suspect]
     Active Substance: BEVACIZUMAB
     Dosage: RIGHT EYE
     Route: 050
     Dates: start: 20190115
  13. AVASTIN [Suspect]
     Active Substance: BEVACIZUMAB
     Dosage: RIGHT EYE
     Route: 050
     Dates: start: 20190403
  14. FUROSEMIDE. [Concomitant]
     Active Substance: FUROSEMIDE
     Route: 048
  15. SITAGLIPTIN [Concomitant]
     Active Substance: SITAGLIPTIN
     Route: 048
  16. AVASTIN [Suspect]
     Active Substance: BEVACIZUMAB
     Dosage: RIGHT AND LEFT EYE
     Route: 050
     Dates: start: 20180915
  17. CALCIFEDIOL [Concomitant]
     Active Substance: CALCIFEDIOL

REACTIONS (3)
  - Proteinuria [Unknown]
  - Renal impairment [Unknown]
  - Off label use [Unknown]
